FAERS Safety Report 5477626-X (Version None)
Quarter: 2007Q4

REPORT INFORMATION
  Report Type: 
  Country: None (occurrence: None)
  Receive Date: 20071002
  Receipt Date: 20070918
  Transmission Date: 20080405
  Serious: Yes (Hospitalization)
  Sender: FDA-Public Use
  Company Number: 2006US000386

PATIENT
  Age: 58 Year
  Sex: Female
  Weight: 56 kg

DRUGS (2)
  1. PROGRAF [Suspect]
     Indication: PROPHYLAXIS AGAINST TRANSPLANT REJECTION
     Dosage: 4 MG, UID/QD,ORAL
     Route: 048
     Dates: start: 20051227, end: 20060224
  2. PROGRAF [Suspect]
     Indication: PROPHYLAXIS AGAINST TRANSPLANT REJECTION
     Dosage: 4 MG, UID/QD,ORAL
     Route: 048
     Dates: start: 20060228

REACTIONS (4)
  - CANDIDIASIS [None]
  - ESCHERICHIA URINARY TRACT INFECTION [None]
  - PYELONEPHRITIS ACUTE [None]
  - URINARY TRACT INFECTION FUNGAL [None]
